FAERS Safety Report 19137550 (Version 1)
Quarter: 2021Q2

REPORT INFORMATION
  Report Type: Spontaneous
  Country: FR (occurrence: FR)
  Receive Date: 20210415
  Receipt Date: 20210415
  Transmission Date: 20210717
  Serious: Yes (Hospitalization)
  Sender: FDA-Public Use
  Company Number: FR-ROCHE-2807625

PATIENT
  Age: 3 Year
  Sex: Male
  Weight: 15 kg

DRUGS (2)
  1. PHENYTOINE [Suspect]
     Active Substance: PHENYTOIN
     Indication: EPILEPSY
     Route: 041
     Dates: start: 20210324, end: 20210324
  2. DIAZEPAM. [Suspect]
     Active Substance: DIAZEPAM
     Indication: EPILEPSY
     Route: 054
     Dates: start: 20210324, end: 20210324

REACTIONS (7)
  - Hypotonia [Recovered/Resolved]
  - Irritability [Recovered/Resolved]
  - Incorrect dose administered [Unknown]
  - Product preparation error [Unknown]
  - Prothrombin time ratio increased [Recovered/Resolved]
  - Somnolence [Recovered/Resolved]
  - Accidental overdose [Unknown]

NARRATIVE: CASE EVENT DATE: 20210324
